FAERS Safety Report 15900427 (Version 1)
Quarter: 2019Q1

REPORT INFORMATION
  Report Type: Spontaneous
  Country: US (occurrence: US)
  Receive Date: 20190131
  Receipt Date: 20190131
  Transmission Date: 20190417
  Serious: Yes (Other)
  Sender: FDA-Public Use
  Company Number: None

PATIENT
  Age: 42 Year
  Sex: Male
  Weight: 64.17 kg

DRUGS (10)
  1. PANTOPRAZOLE [Concomitant]
     Active Substance: PANTOPRAZOLE
  2. IMATINIB. [Suspect]
     Active Substance: IMATINIB MESYLATE
     Indication: MALIGNANT MAST CELL NEOPLASM
     Route: 048
     Dates: start: 20181219
  3. CALCIUM [Concomitant]
     Active Substance: CALCIUM
  4. FAMOTIDINE. [Concomitant]
     Active Substance: FAMOTIDINE
  5. RANITIDINE. [Concomitant]
     Active Substance: RANITIDINE
  6. NYSTATIN. [Concomitant]
     Active Substance: NYSTATIN
  7. DOCUSATE [Concomitant]
     Active Substance: DOCUSATE
  8. LASIX [Concomitant]
     Active Substance: FUROSEMIDE
  9. LORATADINE. [Concomitant]
     Active Substance: LORATADINE
  10. METOPROLOL. [Concomitant]
     Active Substance: METOPROLOL

REACTIONS (2)
  - Vomiting [None]
  - Influenza [None]
